APPROVED DRUG PRODUCT: HYPAQUE
Active Ingredient: DIATRIZOATE SODIUM
Strength: 40%
Dosage Form/Route: SOLUTION;ORAL, RECTAL
Application: N011386 | Product #003
Applicant: GE HEALTHCARE
Approved: Approved Prior to Jan 1, 1982 | RLD: No | RS: No | Type: DISCN